FAERS Safety Report 10041433 (Version 1)
Quarter: 2014Q1

REPORT INFORMATION
  Report Type: Spontaneous
  Country: US (occurrence: None)
  Receive Date: 20140326
  Receipt Date: 20140326
  Transmission Date: 20141002
  Serious: Yes (Other)
  Sender: FDA-Public Use
  Company Number: None

PATIENT
  Age: 49 Year
  Sex: Male
  Weight: 76.2 kg

DRUGS (4)
  1. FENTANYL PATCH [Suspect]
     Indication: RIB FRACTURE
     Dosage: APPLY ONE PATCH, Q 72H, TRANSDERMAL
     Dates: start: 20140206, end: 20140307
  2. FENTANYL PATCH [Suspect]
     Indication: PAIN
     Dosage: APPLY ONE PATCH, Q 72H, TRANSDERMAL
     Dates: start: 20140206, end: 20140307
  3. FINASTERIDE [Concomitant]
  4. WELLBUTRIN [Concomitant]

REACTIONS (3)
  - Chest pain [None]
  - Dyspnoea [None]
  - Application site pain [None]
